FAERS Safety Report 13017019 (Version 1)
Quarter: 2016Q4

REPORT INFORMATION
  Report Type: Spontaneous
  Country: US (occurrence: US)
  Receive Date: 20161211
  Receipt Date: 20161211
  Transmission Date: 20170207
  Serious: Yes (Disabling)
  Sender: FDA-Public Use
  Company Number: None

PATIENT
  Age: 58 Year
  Sex: Female
  Weight: 67.5 kg

DRUGS (4)
  1. HORSE CHESTNUT [Concomitant]
     Active Substance: HORSE CHESTNUT
  2. ENOXAPARIN SODIUM INJECTION, USP 60MG/0.6ML [Suspect]
     Active Substance: ENOXAPARIN SODIUM
     Indication: DEEP VEIN THROMBOSIS
     Dosage: ?          QUANTITY:1 INJECTION(S);?
     Route: 058
     Dates: start: 20160705, end: 20160830
  3. VITAMIN D3 [Concomitant]
     Active Substance: CHOLECALCIFEROL
  4. OMEGA 3 [Concomitant]
     Active Substance: OMEGA-3 FATTY ACIDS

REACTIONS (4)
  - Gait disturbance [None]
  - Asthenia [None]
  - Muscle rupture [None]
  - Pain [None]

NARRATIVE: CASE EVENT DATE: 20160708
